FAERS Safety Report 9615777 (Version 2)
Quarter: 2013Q4

REPORT INFORMATION
  Report Type: Spontaneous
  Country: US (occurrence: US)
  Receive Date: 20131011
  Receipt Date: 20131011
  Transmission Date: 20140711
  Serious: No
  Sender: FDA-Public Use
  Company Number: US-PURDUE-USA-2013-0098599

PATIENT
  Age: 85 Year
  Sex: Female
  Weight: 71.2 kg

DRUGS (1)
  1. BUTRANS [Suspect]
     Indication: ARTHRITIS
     Dosage: 10 MCG/HR, UNK
     Route: 062
     Dates: start: 20111114, end: 20111214

REACTIONS (1)
  - Dermatitis bullous [Recovered/Resolved]
